FAERS Safety Report 7516520-7 (Version None)
Quarter: 2011Q2

REPORT INFORMATION
  Report Type: 
  Country: None (occurrence: None)
  Receive Date: 20110601
  Receipt Date: 20110523
  Transmission Date: 20111010
  Serious: Yes (Hospitalization)
  Sender: FDA-Public Use
  Company Number: A0929735A

PATIENT
  Sex: Female

DRUGS (1)
  1. ARIXTRA [Suspect]

REACTIONS (3)
  - GENERAL PHYSICAL HEALTH DETERIORATION [None]
  - THERAPEUTIC RESPONSE DECREASED [None]
  - HERPES ZOSTER [None]
